FAERS Safety Report 15376576 (Version 2)
Quarter: 2018Q3

REPORT INFORMATION
  Report Type: Spontaneous
  Country: US (occurrence: US)
  Receive Date: 20180912
  Receipt Date: 20180920
  Transmission Date: 20181010
  Serious: No
  Sender: FDA-Public Use
  Company Number: US-TAKEDA-2018TUS026625

PATIENT
  Age: 38 Year
  Sex: Male
  Weight: 99.77 kg

DRUGS (1)
  1. ENTYVIO [Suspect]
     Active Substance: VEDOLIZUMAB
     Indication: CROHN^S DISEASE
     Dosage: 300 MG, UNK
     Route: 042
     Dates: start: 2017

REACTIONS (1)
  - Urine analysis abnormal [Unknown]

NARRATIVE: CASE EVENT DATE: 20180304
